FAERS Safety Report 23905543 (Version 1)
Quarter: 2024Q2

REPORT INFORMATION
  Report Type: Report from Study
  Country: US (occurrence: US)
  Receive Date: 20240527
  Receipt Date: 20240527
  Transmission Date: 20240716
  Serious: Yes (Hospitalization, Other)
  Sender: FDA-Public Use
  Company Number: US-NOVPHSZ-PHEH2019US028178

PATIENT
  Age: 74 Year
  Sex: Male
  Weight: 94.785 kg

DRUGS (5)
  1. TREPROSTINIL [Suspect]
     Active Substance: TREPROSTINIL
     Dosage: 29. NG/KG/ MIN, 5MG/ML
     Route: 042
     Dates: start: 20190709
  2. TREPROSTINIL [Suspect]
     Active Substance: TREPROSTINIL
     Indication: Pulmonary arterial hypertension
     Dosage: 9 NG PER KG PER MIN
     Route: 042
  3. ADEMPAS [Concomitant]
     Active Substance: RIOCIGUAT
     Indication: Product used for unknown indication
     Dosage: UNK
     Route: 065
  4. ELIQUIS [Concomitant]
     Active Substance: APIXABAN
     Indication: Product used for unknown indication
     Dosage: UNK
     Route: 065
  5. REMODULIN [Concomitant]
     Active Substance: TREPROSTINIL
     Indication: Product used for unknown indication
     Route: 065

REACTIONS (4)
  - Central venous catheterisation [Unknown]
  - Penile haemorrhage [Unknown]
  - Blood urine present [Unknown]
  - Haemoptysis [Unknown]

NARRATIVE: CASE EVENT DATE: 20240522
